FAERS Safety Report 16308594 (Version 1)
Quarter: 2019Q2

REPORT INFORMATION
  Report Type: Spontaneous
  Country: US (occurrence: PR)
  Receive Date: 20190514
  Receipt Date: 20190514
  Transmission Date: 20190711
  Serious: Yes (Disabling, Other)
  Sender: FDA-Public Use
  Company Number: US-GE HEALTHCARE LIFE SCIENCES-2019CSU002546

PATIENT

DRUGS (18)
  1. OMNISCAN [Suspect]
     Active Substance: GADODIAMIDE
     Indication: PRODUCT USED FOR UNKNOWN INDICATION
  2. MAGNEVIST [Suspect]
     Active Substance: GADOPENTETATE DIMEGLUMINE
     Indication: PRODUCT USED FOR UNKNOWN INDICATION
  3. MAGNEVIST [Suspect]
     Active Substance: GADOPENTETATE DIMEGLUMINE
     Indication: ANGIOGRAM
  4. PRIMOVIST [Suspect]
     Active Substance: GADOXETATE DISODIUM
     Indication: NUCLEAR MAGNETIC RESONANCE IMAGING
     Route: 042
  5. OPTIMARK [Suspect]
     Active Substance: GADOVERSETAMIDE
     Indication: PRODUCT USED FOR UNKNOWN INDICATION
  6. PRIMOVIST [Suspect]
     Active Substance: GADOXETATE DISODIUM
     Indication: ANGIOGRAM
  7. OMNISCAN [Suspect]
     Active Substance: GADODIAMIDE
     Indication: ANGIOGRAM
  8. MULTIHANCE [Suspect]
     Active Substance: GADOBENATE DIMEGLUMINE
     Indication: PRODUCT USED FOR UNKNOWN INDICATION
  9. OPTIMARK [Suspect]
     Active Substance: GADOVERSETAMIDE
     Indication: NUCLEAR MAGNETIC RESONANCE IMAGING
     Route: 042
  10. EOVIST [Suspect]
     Active Substance: GADOXETATE DISODIUM
     Indication: ANGIOGRAM
  11. PRIMOVIST [Suspect]
     Active Substance: GADOXETATE DISODIUM
     Indication: PRODUCT USED FOR UNKNOWN INDICATION
  12. OMNISCAN [Suspect]
     Active Substance: GADODIAMIDE
     Indication: NUCLEAR MAGNETIC RESONANCE IMAGING
     Route: 042
  13. MAGNEVIST [Suspect]
     Active Substance: GADOPENTETATE DIMEGLUMINE
     Indication: NUCLEAR MAGNETIC RESONANCE IMAGING
     Route: 042
  14. EOVIST [Suspect]
     Active Substance: GADOXETATE DISODIUM
     Indication: PRODUCT USED FOR UNKNOWN INDICATION
  15. MULTIHANCE [Suspect]
     Active Substance: GADOBENATE DIMEGLUMINE
     Indication: NUCLEAR MAGNETIC RESONANCE IMAGING
     Route: 042
  16. MULTIHANCE [Suspect]
     Active Substance: GADOBENATE DIMEGLUMINE
     Indication: ANGIOGRAM
  17. OPTIMARK [Suspect]
     Active Substance: GADOVERSETAMIDE
     Indication: ANGIOGRAM
  18. EOVIST [Suspect]
     Active Substance: GADOXETATE DISODIUM
     Indication: NUCLEAR MAGNETIC RESONANCE IMAGING
     Route: 042

REACTIONS (15)
  - Inflammation [Unknown]
  - Hypoaesthesia [Unknown]
  - Gadolinium deposition disease [Unknown]
  - Burning sensation [Unknown]
  - Paraesthesia [Unknown]
  - Injury [Not Recovered/Not Resolved]
  - Arthralgia [Unknown]
  - Muscle spasms [Unknown]
  - Emotional distress [Not Recovered/Not Resolved]
  - Fatigue [Unknown]
  - Anxiety [Not Recovered/Not Resolved]
  - Rash [Unknown]
  - Confusional state [Unknown]
  - Asthenia [Unknown]
  - Pain [Not Recovered/Not Resolved]
